FAERS Safety Report 6491134-9 (Version None)
Quarter: 2009Q4

REPORT INFORMATION
  Report Type: 
  Country: None (occurrence: None)
  Receive Date: 20091208
  Receipt Date: 20091130
  Transmission Date: 20100525
  Serious: Yes (Other)
  Sender: FDA-Public Use
  Company Number: 2009S1008729

PATIENT
  Sex: Female

DRUGS (1)
  1. PHOSPHOSODA          FLAVOR NOT SPECIFIED [Suspect]
     Indication: COLONOSCOPY
     Dosage: 90 ML; PO
     Route: 048
     Dates: start: 20061210

REACTIONS (7)
  - DIZZINESS [None]
  - DYSPEPSIA [None]
  - FATIGUE [None]
  - HYPERPARATHYROIDISM SECONDARY [None]
  - NAUSEA [None]
  - RENAL FAILURE CHRONIC [None]
  - WEIGHT DECREASED [None]
